FAERS Safety Report 7967921-4 (Version None)
Quarter: 2011Q4

REPORT INFORMATION
  Report Type: 
  Country: None (occurrence: None)
  Receive Date: 20111209
  Receipt Date: 20111115
  Transmission Date: 20120403
  Serious: Yes (Life-Threatening, Hospitalization)
  Sender: FDA-Public Use
  Company Number: US-ROCHE-789378

PATIENT
  Sex: Female
  Weight: 74.4 kg

DRUGS (20)
  1. VEMURAFENIB [Suspect]
     Dates: start: 20110810, end: 20110819
  2. VEMURAFENIB [Suspect]
     Dates: start: 20110826, end: 20110827
  3. CHOLECALCIFEROL [Concomitant]
  4. VEMURAFENIB [Suspect]
     Indication: THYROID CANCER
     Dosage: LAST DOSE PRIOR TO SAE 07 JULY 2011.
     Route: 048
     Dates: start: 20110630, end: 20110707
  5. TRAMADOL HCL [Concomitant]
  6. VEMURAFENIB [Suspect]
     Dosage: DOSE MODIFIED DUE TO AN ADVERSE EVENT AND THEN INTERRUPTED ON 22 JUL 2011 (REASON NOT SPECIFIED)
     Dates: start: 20110714, end: 20110722
  7. BIFIDOBACTERIUM [Concomitant]
     Indication: PROPHYLAXIS
     Dosage: REPORT AS ALIGN OR
     Route: 048
  8. VEMURAFENIB [Suspect]
     Dates: start: 20110922, end: 20110929
  9. NADOLOL [Concomitant]
     Indication: ESSENTIAL HYPERTENSION
     Route: 048
  10. NORVASC [Concomitant]
     Indication: ESSENTIAL HYPERTENSION
     Route: 048
  11. VEMURAFENIB [Suspect]
     Dosage: DOSE MODIFIED DUE TO AE, THEN INTERRUPTED AGAIN (REASON NOT SPECIFIED)
     Dates: start: 20110728, end: 20110810
  12. ATIVAN [Concomitant]
     Indication: INSOMNIA
     Route: 048
  13. CICLESONIDE [Concomitant]
  14. IBUPROFEN [Concomitant]
  15. SYNTHROID [Concomitant]
     Dosage: INDICATION: MEDICAL HISTORY NOT SPECIFIED
     Route: 048
     Dates: start: 20100909
  16. MULTI-VITAMIN [Concomitant]
     Indication: PROPHYLAXIS
     Route: 048
     Dates: start: 20080425
  17. VEMURAFENIB [Suspect]
     Dates: start: 20110918, end: 20110920
  18. ASPIRIN [Concomitant]
     Indication: PROPHYLAXIS
     Route: 048
  19. CITRACAL + D [Concomitant]
     Indication: PROPHYLAXIS
     Dosage: REPORTED AS CITRAL
     Route: 048
  20. CODEINE SUL TAB [Concomitant]
     Indication: DIARRHOEA
     Dosage: TAKEN FOR AE:DIARRHOEA
     Route: 048

REACTIONS (3)
  - HYPOTENSION [None]
  - BLOOD URIC ACID INCREASED [None]
  - RASH ERYTHEMATOUS [None]
